FAERS Safety Report 4427470-7 (Version None)
Quarter: 2004Q3

REPORT INFORMATION
  Report Type: 
  Country: None (occurrence: None)
  Receive Date: 20040816
  Receipt Date: 20040816
  Transmission Date: 20050211
  Serious: No
  Sender: FDA-Public Use
  Company Number: None

PATIENT
  Sex: Male
  Weight: 56 kg

DRUGS (1)
  1. DEFEROXAMINE 2 G [Suspect]
     Indication: THALASSAEMIA BETA
     Dosage: 2 G SQ 6X /WEEK
     Route: 058
     Dates: start: 20040617

REACTIONS (3)
  - ERYTHEMA [None]
  - PHARMACEUTICAL PRODUCT COMPLAINT [None]
  - SWELLING [None]
